FAERS Safety Report 6072045-X (Version None)
Quarter: 2009Q1

REPORT INFORMATION
  Report Type: 
  Country: None (occurrence: None)
  Receive Date: 20090205
  Receipt Date: 20090205
  Transmission Date: 20090719
  Serious: Yes (Other)
  Sender: FDA-Public Use
  Company Number: None

PATIENT
  Age: 56 Year
  Sex: Male
  Weight: 68.9467 kg

DRUGS (1)
  1. ISOSORBIDE MONONITRATE [Suspect]
     Indication: HYPERTENSION
     Dosage: 1 TABLET DAILY
     Dates: start: 20060101, end: 20090130

REACTIONS (7)
  - BRADYPHRENIA [None]
  - DEPRESSION [None]
  - HYPOTENSION [None]
  - INCORRECT DOSE ADMINISTERED [None]
  - LETHARGY [None]
  - PRODUCT QUALITY ISSUE [None]
  - SYNCOPE [None]
